FAERS Safety Report 9349528 (Version 18)
Quarter: 2015Q3

REPORT INFORMATION
  Report Type: Spontaneous
  Country: US (occurrence: US)
  Receive Date: 20130614
  Receipt Date: 20150915
  Transmission Date: 20151125
  Serious: Yes (Death, Hospitalization, Other)
  Sender: FDA-Public Use
  Company Number: US-GLAXOSMITHKLINE-A1027137A

PATIENT
  Age: 50 Year
  Sex: Female

DRUGS (11)
  1. FLOLAN [Suspect]
     Active Substance: EPOPROSTENOL SODIUM
     Dosage: 27.7 NG/KG/MIN CONTINUOUS; CONCENTRATION: 30,000 NG/ML; PUMP RATE: 80 ML/DAY; VIAL STRENGTH: 1.5 MG
     Route: 042
     Dates: start: 20120319
  2. FLOLAN [Suspect]
     Active Substance: EPOPROSTENOL SODIUM
     Dosage: UNK
     Dates: start: 20120301
  3. FLOLAN [Suspect]
     Active Substance: EPOPROSTENOL SODIUM
     Dosage: UNK
     Dates: start: 20120301
  4. FLOLAN [Suspect]
     Active Substance: EPOPROSTENOL SODIUM
     Dosage: UNK
     Dates: start: 20120301
  5. FLOLAN [Suspect]
     Active Substance: EPOPROSTENOL SODIUM
     Indication: PULMONARY ARTERIAL HYPERTENSION
     Dosage: UNK
     Dates: start: 20120301
  6. FLOLAN [Suspect]
     Active Substance: EPOPROSTENOL SODIUM
     Dosage: 28 NG/KG/MIN CONTINUOUSLY
     Route: 042
  7. FLOLAN [Suspect]
     Active Substance: EPOPROSTENOL SODIUM
     Indication: PULMONARY HYPERTENSION
     Dosage: 15 NG/KG/MIN CONTINUOUSLY, CONCENTRATION 30,000 NG/ML,1.5 MG VIAL STRENGTHPUMP RATE 65ML/DAY17.[...]
     Route: 042
     Dates: start: 20120301
  8. FLOLAN [Suspect]
     Active Substance: EPOPROSTENOL SODIUM
     Dosage: UNK
  9. FLOLAN [Suspect]
     Active Substance: EPOPROSTENOL SODIUM
     Dosage: UNK
     Dates: start: 20120301
  10. FLOLAN [Suspect]
     Active Substance: EPOPROSTENOL SODIUM
     Dosage: 29 NG/KG/MIN
     Dates: start: 20120316
  11. FLOLAN [Suspect]
     Active Substance: EPOPROSTENOL SODIUM
     Indication: COR PULMONALE CHRONIC
     Dosage: 29 NG/KG/MIN CONTINUOUSLY; VIAL STRENGTH 1.5MG
     Dates: start: 20120229

REACTIONS (12)
  - Catheter site related reaction [Recovered/Resolved]
  - Injection site irritation [Unknown]
  - Death [Fatal]
  - Diabetes mellitus [Unknown]
  - Emergency care examination [Unknown]
  - Hospitalisation [Not Recovered/Not Resolved]
  - Peritonitis [Unknown]
  - Decreased appetite [Unknown]
  - Endotracheal intubation [Unknown]
  - Catheter site rash [Recovered/Resolved]
  - Abdominal distension [Unknown]
  - Infusion site pruritus [Recovered/Resolved]

NARRATIVE: CASE EVENT DATE: 201408
